FAERS Safety Report 6229744-6 (Version None)
Quarter: 2009Q2

REPORT INFORMATION
  Report Type: 
  Country: None (occurrence: None)
  Receive Date: 20090615
  Receipt Date: 20090605
  Transmission Date: 20091009
  Serious: Yes (Other)
  Sender: FDA-Public Use
  Company Number: PHEH2009US05808

PATIENT
  Age: 37 Year
  Sex: Male

DRUGS (3)
  1. TEKTURNA [Suspect]
     Dosage: 1/2 OF 150MG, QHS (SINGLE EPISODE)
     Dates: start: 20090601, end: 20090601
  2. DIOVAN HCT [Concomitant]
     Dosage: 320VAL/25HCT, UNK
  3. BYSTOLIC [Concomitant]

REACTIONS (1)
  - TACHYCARDIA [None]
